FAERS Safety Report 15076150 (Version 4)
Quarter: 2018Q3

REPORT INFORMATION
  Report Type: Spontaneous
  Country: JP (occurrence: JP)
  Receive Date: 20180627
  Receipt Date: 20180914
  Transmission Date: 20181010
  Serious: Yes (Life-Threatening, Other)
  Sender: FDA-Public Use
  Company Number: JP-OTSUKA-2018_017529AA

PATIENT
  Age: 58 Year
  Sex: Female

DRUGS (6)
  1. DEPAKENE [Suspect]
     Active Substance: VALPROIC ACID
     Indication: RESTLESSNESS
     Dosage: 0.5 G, DAILY DOSE
     Route: 048
     Dates: start: 20180511, end: 20180511
  2. GLUCOSE [Concomitant]
     Active Substance: DEXTROSE
     Indication: PRODUCT USED FOR UNKNOWN INDICATION
     Dosage: 1 DF, UNK
     Route: 042
     Dates: start: 20180509
  3. REXULTI [Suspect]
     Active Substance: BREXPIPRAZOLE
     Indication: SCHIZOPHRENIA
     Dosage: 1 MG, AFTER DINNER (ON A TEMPORARY BASIS)
     Route: 048
     Dates: start: 20180509, end: 20180511
  4. BROTIZOLAM [Concomitant]
     Active Substance: BROTIZOLAM
     Indication: PRODUCT USED FOR UNKNOWN INDICATION
     Dosage: 1 DF, BEFORE BEDTIME (ON A TEMPORA RY BASIS)
     Route: 048
     Dates: start: 20180509, end: 201805
  5. BELSOMRA [Concomitant]
     Active Substance: SUVOREXANT
     Indication: PRODUCT USED FOR UNKNOWN INDICATION
     Dosage: 1 DF, PRN FOR SLEEPLES SNESS(PRESCRI BED 5 DOSES)
     Route: 065
  6. DEPAKENE [Concomitant]
     Active Substance: VALPROIC ACID
     Indication: PRODUCT USED FOR UNKNOWN INDICATION
     Dosage: 1 DF, AFTER DINNER (ON A TEMPORA RY BASIS)
     Route: 048
     Dates: start: 20180509, end: 201805

REACTIONS (5)
  - White blood cell count increased [Unknown]
  - Dyskinesia [Unknown]
  - Pyrexia [Not Recovered/Not Resolved]
  - Altered state of consciousness [Not Recovered/Not Resolved]
  - Vomiting [Not Recovered/Not Resolved]

NARRATIVE: CASE EVENT DATE: 20180512
